FAERS Safety Report 8544909-6 (Version None)
Quarter: 2012Q3

REPORT INFORMATION
  Report Type: 
  Country: None (occurrence: None)
  Receive Date: 20120727
  Receipt Date: 20120719
  Transmission Date: 20120928
  Serious: Yes (Other)
  Sender: FDA-Public Use
  Company Number: CA-JNJFOC-20120520009

PATIENT
  Sex: Female
  Weight: 58.2 kg

DRUGS (7)
  1. CORTIFOAM [Concomitant]
     Route: 065
  2. REMICADE [Suspect]
     Indication: CROHN'S DISEASE
     Route: 042
     Dates: start: 20100112
  3. IRON [Concomitant]
     Route: 065
  4. SERTRALINE HYDROCHLORIDE [Concomitant]
     Route: 065
  5. DEXILANT [Concomitant]
     Route: 065
  6. BUDESONIDE [Concomitant]
     Route: 065
  7. PANADEINE CO [Concomitant]
     Route: 065

REACTIONS (1)
  - GASTROINTESTINAL ENDOSCOPIC THERAPY [None]
